FAERS Safety Report 20373564 (Version 1)
Quarter: 2022Q1

REPORT INFORMATION
  Report Type: Spontaneous
  Country: US (occurrence: US)
  Receive Date: 20220125
  Receipt Date: 20220125
  Transmission Date: 20220424
  Serious: No
  Sender: FDA-Public Use
  Company Number: US-ALLERGAN-2049091US

PATIENT
  Age: 73 Year
  Sex: Female

DRUGS (1)
  1. BYSTOLIC [Suspect]
     Active Substance: NEBIVOLOL HYDROCHLORIDE
     Indication: Product used for unknown indication

REACTIONS (5)
  - Intraocular pressure increased [Unknown]
  - Gingival bleeding [Unknown]
  - Epistaxis [Unknown]
  - Headache [Unknown]
  - Hypotension [Unknown]
